FAERS Safety Report 5339339-4 (Version None)
Quarter: 2007Q2

REPORT INFORMATION
  Report Type: 
  Country: None (occurrence: None)
  Receive Date: 20070322
  Receipt Date: 20070116
  Transmission Date: 20071010
  Serious: Yes (Other)
  Sender: FDA-Public Use
  Company Number: 200615045BCC

PATIENT
  Age: 52 Year
  Sex: Female

DRUGS (1)
  1. ALEVE [Suspect]
     Indication: DRUG USE FOR UNKNOWN INDICATION
     Dosage: 220 MG, ONCE, ORAL
     Route: 048
     Dates: start: 20061205

REACTIONS (2)
  - BLOOD URINE PRESENT [None]
  - PROTEIN URINE PRESENT [None]
